FAERS Safety Report 7674387-0 (Version None)
Quarter: 2011Q3

REPORT INFORMATION
  Report Type: 
  Country: None (occurrence: None)
  Receive Date: 20110808
  Receipt Date: 20110726
  Transmission Date: 20111222
  Serious: Yes (Death, Hospitalization, Congenital Anomaly)
  Sender: FDA-Public Use
  Company Number: 998241

PATIENT
  Sex: Male
  Weight: 0.98 kg

DRUGS (2)
  1. MISOPROSTOL [Concomitant]
     Dosage: TRANSPLACENTAL
     Route: 064
  2. METHOTREXATE [Suspect]
     Dosage: TRANSPLACENTAL
     Route: 064

REACTIONS (31)
  - PULMONARY HYPOPLASIA [None]
  - CLINODACTYLY [None]
  - PREMATURE LABOUR [None]
  - FOETAL HEART RATE DISORDER [None]
  - CONGENITAL PULMONARY HYPERTENSION [None]
  - FONTANELLE BULGING [None]
  - CONGENITAL NOSE MALFORMATION [None]
  - CRYPTORCHISM [None]
  - CONGENITAL CENTRAL NERVOUS SYSTEM ANOMALY [None]
  - MICROGNATHIA [None]
  - STRABISMUS [None]
  - TREATMENT FAILURE [None]
  - CONGENITAL EYE DISORDER [None]
  - NUCLEAR MAGNETIC RESONANCE IMAGING BRAIN ABNORMAL [None]
  - MYOCARDIAL FIBROSIS [None]
  - NEONATAL HYPOXIA [None]
  - ANOMALY OF ORBIT, CONGENITAL [None]
  - DIFFUSE ALVEOLAR DAMAGE [None]
  - CAESAREAN SECTION [None]
  - CLEFT PALATE [None]
  - EAR MALFORMATION [None]
  - ABNORMAL PALMAR/PLANTAR CREASES [None]
  - COR PULMONALE [None]
  - RIB DEFORMITY [None]
  - BRACHYCEPHALY [None]
  - BRONCHOPNEUMONIA [None]
  - MATERNAL DRUGS AFFECTING FOETUS [None]
  - CRANIAL NERVE DISORDER [None]
  - CHRONIC OBSTRUCTIVE PULMONARY DISEASE [None]
  - NEONATAL RESPIRATORY FAILURE [None]
  - MYOCARDIAL ISCHAEMIA [None]
